FAERS Safety Report 9316378 (Version 2)
Quarter: 2013Q3

REPORT INFORMATION
  Report Type: Spontaneous
  Country: US (occurrence: US)
  Receive Date: 20130530
  Receipt Date: 20130731
  Transmission Date: 20140515
  Serious: Yes (Other)
  Sender: FDA-Public Use
  Company Number: US-GENZYME-CERZ-1002933

PATIENT
  Age: 5 Year
  Sex: Male
  Weight: 21.4 kg

DRUGS (14)
  1. CEREZYME [Suspect]
     Indication: GAUCHER^S DISEASE
     Dosage: 74 U/KG, Q2W
     Route: 042
     Dates: start: 20110803
  2. MULTIVITAMINS WITH MINERALS [Concomitant]
     Indication: PRODUCT USED FOR UNKNOWN INDICATION
     Dosage: UNK
     Route: 048
  3. COLECALCIFEROL [Concomitant]
     Indication: PRODUCT USED FOR UNKNOWN INDICATION
     Dosage: 2 DF, QD
     Route: 048
  4. EPIPEN [Concomitant]
     Indication: PRODUCT USED FOR UNKNOWN INDICATION
     Dosage: UNK
     Route: 030
  5. OMEGA-3 FATTY ACIDS [Concomitant]
     Indication: PRODUCT USED FOR UNKNOWN INDICATION
     Dosage: 1000 MG, UNK
     Route: 048
  6. VENTOLIN HFA [Concomitant]
     Indication: WHEEZING
     Dosage: 2 DF, Q4HR
     Route: 048
  7. VENTOLIN HFA [Concomitant]
     Indication: COUGH
  8. FLUTICASONE [Concomitant]
     Indication: PRODUCT USED FOR UNKNOWN INDICATION
     Dosage: 2 DF, BID
     Route: 055
  9. CETIRIZINE [Concomitant]
     Indication: PRODUCT USED FOR UNKNOWN INDICATION
     Dosage: 5 ML, QD
     Route: 048
  10. ZITHROMAX [Concomitant]
     Indication: PRODUCT USED FOR UNKNOWN INDICATION
     Dosage: 200 MG/ 5ML
     Route: 048
  11. SALINE [Concomitant]
     Indication: PRODUCT USED FOR UNKNOWN INDICATION
     Dosage: UNK
     Route: 045
  12. OXYMETAZOLINE [Concomitant]
     Indication: PRODUCT USED FOR UNKNOWN INDICATION
     Dosage: 1 DF, BID
     Route: 045
  13. ALBUTEROL [Concomitant]
     Indication: WHEEZING
     Dosage: 2.5 UNK, Q4HR
     Route: 055
  14. ALBUTEROL [Concomitant]
     Indication: COUGH

REACTIONS (1)
  - Pneumonia mycoplasmal [Recovered/Resolved]
